FAERS Safety Report 15132712 (Version 2)
Quarter: 2018Q3

REPORT INFORMATION
  Report Type: Spontaneous
  Country: CN (occurrence: CN)
  Receive Date: 20180712
  Receipt Date: 20180830
  Transmission Date: 20181010
  Serious: Yes (Hospitalization, Other)
  Sender: FDA-Public Use
  Company Number: CN-009507513-1807CHN004584

PATIENT
  Age: 73 Year
  Sex: Male

DRUGS (4)
  1. INVANZ [Suspect]
     Active Substance: ERTAPENEM SODIUM
     Indication: ANAL ABSCESS
  2. ERTAPENEM SODIUM [Suspect]
     Active Substance: ERTAPENEM SODIUM
     Indication: ANAL ABSCESS
     Dosage: 0.5 G, ONCE DAILY
     Route: 042
     Dates: start: 201501, end: 201501
  3. INVANZ [Suspect]
     Active Substance: ERTAPENEM SODIUM
     Indication: LUNG INFECTION
  4. ERTAPENEM SODIUM [Suspect]
     Active Substance: ERTAPENEM SODIUM
     Indication: LUNG INFECTION
     Dosage: 0.5 G, ONCE DAILY
     Route: 042
     Dates: start: 2014

REACTIONS (4)
  - Delirium [Recovered/Resolved]
  - Epilepsy [Recovered/Resolved]
  - Hallucination [Recovered/Resolved]
  - Epilepsy [Recovered/Resolved]

NARRATIVE: CASE EVENT DATE: 2014
